APPROVED DRUG PRODUCT: FRAGMIN
Active Ingredient: DALTEPARIN SODIUM
Strength: 15,000IU/0.6ML (25,000IU/ML)
Dosage Form/Route: INJECTABLE;SUBCUTANEOUS
Application: N020287 | Product #010
Applicant: PFIZER INC
Approved: May 1, 2007 | RLD: Yes | RS: No | Type: RX